FAERS Safety Report 12635495 (Version 3)
Quarter: 2016Q3

REPORT INFORMATION
  Report Type: Spontaneous
  Country: US (occurrence: US)
  Receive Date: 20160809
  Receipt Date: 20160831
  Transmission Date: 20161109
  Serious: Yes (Hospitalization)
  Sender: FDA-Public Use
  Company Number: US-JNJFOC-20160803216

PATIENT
  Sex: Female
  Weight: 103.87 kg

DRUGS (22)
  1. HYDROCODONE/ACETAMINOPHEN [Concomitant]
     Active Substance: ACETAMINOPHEN\HYDROCODONE
     Dosage: 5 MG/325 MG
     Route: 048
     Dates: start: 20160707
  2. VITAMIN D [Concomitant]
     Active Substance: CHOLECALCIFEROL
     Route: 065
     Dates: start: 20111110
  3. VALTREX [Concomitant]
     Active Substance: VALACYCLOVIR HYDROCHLORIDE
     Route: 065
     Dates: start: 20160531
  4. TORSEMIDE. [Concomitant]
     Active Substance: TORSEMIDE
     Route: 048
     Dates: start: 20160804
  5. CITALOPRAM HYDROBROMIDE. [Concomitant]
     Active Substance: CITALOPRAM HYDROBROMIDE
     Dosage: TAKE 1.5 TABLET
     Route: 048
     Dates: start: 20140805
  6. SYNTHROID [Concomitant]
     Active Substance: LEVOTHYROXINE SODIUM
     Route: 048
     Dates: start: 20100426
  7. CRESTOR [Concomitant]
     Active Substance: ROSUVASTATIN CALCIUM
     Dosage: 6 DAYS A WEEK
     Route: 048
     Dates: start: 20160804
  8. VITAMIN E [Concomitant]
     Active Substance: .ALPHA.-TOCOPHEROL
     Route: 065
     Dates: start: 20141114
  9. XARELTO [Suspect]
     Active Substance: RIVAROXABAN
     Indication: ATRIAL FIBRILLATION
     Route: 048
  10. ASPIRIN. [Suspect]
     Active Substance: ASPIRIN
     Indication: ANTIPLATELET THERAPY
     Route: 048
     Dates: start: 20140212
  11. OMEPRAZOLE. [Concomitant]
     Active Substance: OMEPRAZOLE
     Route: 048
     Dates: start: 20160707
  12. TETRAZEPAM [Concomitant]
     Active Substance: TETRAZEPAM
     Dosage: AT BEDTIME
     Route: 048
     Dates: start: 20140508
  13. FLAXSEED [Concomitant]
     Active Substance: FLAX SEED
     Route: 048
     Dates: start: 20080708
  14. METOPROLOL SUCCINATE. [Concomitant]
     Active Substance: METOPROLOL SUCCINATE
     Route: 048
     Dates: start: 20140805
  15. CELEXA [Concomitant]
     Active Substance: CITALOPRAM HYDROBROMIDE
     Route: 048
     Dates: start: 20110810
  16. XARELTO [Suspect]
     Active Substance: RIVAROXABAN
     Indication: CEREBROVASCULAR ACCIDENT PROPHYLAXIS
     Route: 048
  17. SPIRONOLACTONE. [Concomitant]
     Active Substance: SPIRONOLACTONE
     Route: 048
     Dates: start: 20140807
  18. MAGNESIUM CHELATE [Concomitant]
     Route: 065
     Dates: start: 20160509
  19. FOLIVANE F [Concomitant]
     Route: 048
     Dates: start: 20150929
  20. FOLIC ACID. [Concomitant]
     Active Substance: FOLIC ACID
     Route: 065
     Dates: start: 20140212
  21. POTASSIUM CHLORIDE. [Concomitant]
     Active Substance: POTASSIUM CHLORIDE
     Route: 048
     Dates: start: 20160714
  22. VITAMINA B12 [Concomitant]
     Dosage: 5000 SUBLINGUAL
     Route: 065
     Dates: start: 20140508

REACTIONS (2)
  - Gastrointestinal arteriovenous malformation [Recovered/Resolved]
  - Gastrointestinal haemorrhage [Recovered/Resolved]
